FAERS Safety Report 20547455 (Version 1)
Quarter: 2022Q1

REPORT INFORMATION
  Report Type: Spontaneous
  Country: US (occurrence: US)
  Receive Date: 20220303
  Receipt Date: 20220303
  Transmission Date: 20220423
  Serious: No
  Sender: FDA-Public Use
  Company Number: US-BIOGEN-2022BI01100304

PATIENT
  Sex: Female

DRUGS (1)
  1. TYSABRI [Suspect]
     Active Substance: NATALIZUMAB
     Indication: Multiple sclerosis
     Route: 065
     Dates: start: 20161214

REACTIONS (8)
  - Hidradenitis [Not Recovered/Not Resolved]
  - Stress [Unknown]
  - Pain [Unknown]
  - Aphasia [Unknown]
  - Memory impairment [Unknown]
  - Gait inability [Unknown]
  - Anxiety [Unknown]
  - Fatigue [Unknown]
